FAERS Safety Report 17693231 (Version 1)
Quarter: 2020Q2

REPORT INFORMATION
  Report Type: Spontaneous
  Country: BR (occurrence: BR)
  Receive Date: 20200422
  Receipt Date: 20200422
  Transmission Date: 20200714
  Serious: Yes (Other)
  Sender: FDA-Public Use
  Company Number: BR-PFIZER INC-2016058873

PATIENT
  Age: 42 Year
  Sex: Male
  Weight: 105 kg

DRUGS (3)
  1. NORVASC [Suspect]
     Active Substance: AMLODIPINE BESYLATE
     Dosage: UNK
  2. NORVASC [Suspect]
     Active Substance: AMLODIPINE BESYLATE
     Indication: HYPERTENSION
     Dosage: 1 TABLET, DAILY
     Route: 048
     Dates: start: 1996, end: 2012
  3. CLORANA [Concomitant]
     Active Substance: HYDROCHLOROTHIAZIDE
     Indication: HYPERTENSION
     Dosage: 25 MG, DAILY
     Dates: start: 2001

REACTIONS (7)
  - Drug ineffective [Recovered/Resolved]
  - Thrombosis [Unknown]
  - Gout [Not Recovered/Not Resolved]
  - Overweight [Not Recovered/Not Resolved]
  - Rash macular [Not Recovered/Not Resolved]
  - Dengue fever [Unknown]
  - Skin irritation [Not Recovered/Not Resolved]

NARRATIVE: CASE EVENT DATE: 2001
